FAERS Safety Report 5441363-8 (Version None)
Quarter: 2007Q3

REPORT INFORMATION
  Report Type: 
  Country: None (occurrence: None)
  Receive Date: 20070903
  Receipt Date: 20070827
  Transmission Date: 20080115
  Serious: Yes (Other)
  Sender: FDA-Public Use
  Company Number: PHBS2007BR14209

PATIENT
  Age: 58 Year
  Sex: Female

DRUGS (4)
  1. DICLOFENAC SODIUM [Concomitant]
     Dosage: 2 DRP, UNK
     Dates: start: 20070713
  2. FLOTAC [Suspect]
     Dosage: UNK, UNK
     Dates: start: 20020101
  3. CELEBRA [Concomitant]
  4. PREXIGE [Concomitant]
     Dosage: 400 MG/DAY
     Route: 048

REACTIONS (9)
  - EPISTAXIS [None]
  - FALL [None]
  - GINGIVAL BLEEDING [None]
  - HAEMATOMA [None]
  - HEADACHE [None]
  - HYPERSENSITIVITY [None]
  - MALAISE [None]
  - PALPITATIONS [None]
  - VISION BLURRED [None]
